FAERS Safety Report 12242921 (Version 2)
Quarter: 2016Q2

REPORT INFORMATION
  Report Type: Report from Study
  Country: BR (occurrence: BR)
  Receive Date: 20160406
  Receipt Date: 20160509
  Transmission Date: 20160815
  Serious: Yes (Other)
  Sender: FDA-Public Use
  Company Number: PHHY2016BR044999

PATIENT
  Sex: Female
  Weight: 97 kg

DRUGS (2)
  1. MUVINOR [Concomitant]
     Indication: GASTROINTESTINAL DISORDER
     Dosage: 2 DF, QD (15 YEARS AGO)
     Route: 048
  2. FORASEQ [Suspect]
     Active Substance: BUDESONIDE\FORMOTEROL FUMARATE
     Indication: ASTHMA
     Dosage: 3 DF, QD (15 YEARS AGO)
     Route: 055
     Dates: start: 2001

REACTIONS (1)
  - Retinal detachment [Recovering/Resolving]
